FAERS Safety Report 5036945-1 (Version None)
Quarter: 2006Q2

REPORT INFORMATION
  Report Type: 
  Country: None (occurrence: None)
  Receive Date: 20060628
  Receipt Date: 20041130
  Transmission Date: 20061013
  Serious: Yes (Death, Other)
  Sender: FDA-Public Use
  Company Number: 200413680JP

PATIENT
  Age: 62 Year
  Sex: Female
  Weight: 40 kg

DRUGS (19)
  1. ARAVA [Suspect]
     Indication: RHEUMATOID ARTHRITIS
     Route: 048
     Dates: start: 20040909, end: 20041014
  2. ARAVA [Suspect]
     Route: 048
     Dates: start: 20041028, end: 20041129
  3. FIRSTCIN [Suspect]
     Indication: INFECTION
  4. PREDONINE [Concomitant]
     Indication: MUSCULOSKELETAL PAIN
     Route: 048
  5. VOLTAREN [Concomitant]
     Indication: MUSCULOSKELETAL PAIN
     Route: 048
  6. MUCOSTA [Concomitant]
     Indication: GASTRITIS
     Route: 048
  7. MUCOSTA [Concomitant]
     Indication: PROPHYLAXIS
     Route: 048
  8. ZANTAC [Concomitant]
     Indication: GASTRITIS
     Route: 048
  9. ZANTAC [Concomitant]
     Indication: PROPHYLAXIS
     Route: 048
  10. ADALAT [Concomitant]
     Indication: HYPERTENSION
     Route: 048
  11. MAGLAX [Concomitant]
     Indication: CONSTIPATION
     Route: 048
  12. MUCODYNE [Concomitant]
     Indication: BRONCHIECTASIS
     Route: 048
  13. MUCOSOLVAN [Concomitant]
     Indication: BRONCHIECTASIS
     Route: 048
  14. TANATRIL [Concomitant]
     Indication: HYPERTENSION
     Route: 048
  15. FERRUM [Concomitant]
     Indication: ANAEMIA
     Route: 048
  16. KLARICID [Concomitant]
     Indication: BRONCHIECTASIS
     Route: 048
  17. AZULFIDINE [Concomitant]
     Indication: MUSCULOSKELETAL PAIN
     Route: 048
     Dates: end: 20040908
  18. HUMULIN 70/30 [Concomitant]
     Indication: DIABETES MELLITUS
     Route: 058
  19. HUMULIN N [Concomitant]
     Indication: DIABETES MELLITUS
     Route: 058

REACTIONS (13)
  - ALANINE AMINOTRANSFERASE INCREASED [None]
  - ASPARTATE AMINOTRANSFERASE INCREASED [None]
  - BLOOD ALKALINE PHOSPHATASE INCREASED [None]
  - BLOOD LACTATE DEHYDROGENASE INCREASED [None]
  - DYSPNOEA [None]
  - INTERSTITIAL LUNG DISEASE [None]
  - LIVER DISORDER [None]
  - NEUTROPENIA [None]
  - PLEURAL EFFUSION [None]
  - PNEUMONIA BACTERIAL [None]
  - PNEUMONIA FUNGAL [None]
  - RESPIRATORY DISORDER [None]
  - WHITE BLOOD CELL COUNT DECREASED [None]
